FAERS Safety Report 9688891 (Version 1)
Quarter: 2013Q4

REPORT INFORMATION
  Report Type: Spontaneous
  Country: US (occurrence: US)
  Receive Date: 20131114
  Receipt Date: 20131114
  Transmission Date: 20140711
  Serious: No
  Sender: FDA-Public Use
  Company Number: US-009507513-1311USA005734

PATIENT
  Sex: Male

DRUGS (4)
  1. CORICIDIN HBP COUGH AND COLD [Suspect]
     Indication: NASOPHARYNGITIS
     Dosage: UNK, UNKNOWN
     Route: 048
     Dates: start: 20131105
  2. CORICIDIN HBP COUGH AND COLD [Suspect]
     Indication: HEADACHE
  3. CORICIDIN HBP COUGH AND COLD [Suspect]
     Indication: RHINORRHOEA
  4. CORICIDIN HBP COUGH AND COLD [Suspect]
     Indication: NASAL CONGESTION

REACTIONS (2)
  - Pain [Unknown]
  - Inappropriate schedule of drug administration [Unknown]
